FAERS Safety Report 16110976 (Version 1)
Quarter: 2019Q1

REPORT INFORMATION
  Report Type: Spontaneous
  Country: ES (occurrence: ES)
  Receive Date: 20190325
  Receipt Date: 20190325
  Transmission Date: 20190418
  Serious: Yes (Other)
  Sender: FDA-Public Use
  Company Number: ES-TEVA-2019-ES-1027464

PATIENT
  Age: 72 Year
  Sex: Male

DRUGS (7)
  1. SIMVASTATINA 10 MG 28 COMP [Concomitant]
     Dates: start: 20180514
  2. CILOSTAZOL. [Suspect]
     Active Substance: CILOSTAZOL
     Indication: INTERMITTENT CLAUDICATION
     Dosage: 100 MILLIGRAM DAILY; 1 AL DIA, 1/2 ANTES DE COMER Y 1/2 ANTES DE CENAR
     Route: 048
     Dates: start: 20180917
  3. OMEPRAZOL 20 MG 28 CAP [Interacting]
     Active Substance: OMEPRAZOLE
     Dates: start: 20180514
  4. ACOVIL 10 MG 28 COMP [Concomitant]
     Dates: start: 20180514
  5. AMLODIPINO 5 MG 30 COMP [Concomitant]
     Dates: start: 20180514
  6. ACIDO ACETILSALICILICO 100 MG 30 COMP [Concomitant]
     Dates: start: 20180514
  7. UROLOSIN 0.4 MG 30 COMP [Concomitant]
     Dates: start: 20180514

REACTIONS (6)
  - Dyspnoea [Recovering/Resolving]
  - Hypertension [Recovering/Resolving]
  - Erythema [Recovering/Resolving]
  - Drug interaction [Unknown]
  - Angina pectoris [Recovering/Resolving]
  - Tachycardia [Recovering/Resolving]

NARRATIVE: CASE EVENT DATE: 20190201
